FAERS Safety Report 7532037-8 (Version None)
Quarter: 2011Q2

REPORT INFORMATION
  Report Type: 
  Country: None (occurrence: None)
  Receive Date: 20110608
  Receipt Date: 20110601
  Transmission Date: 20111010
  Serious: Yes (Hospitalization)
  Sender: FDA-Public Use
  Company Number: EG-SANOFI-AVENTIS-2011SA034651

PATIENT
  Age: 57 Year
  Sex: Female

DRUGS (2)
  1. INSULIN GLARGINE [Suspect]
     Indication: TYPE 2 DIABETES MELLITUS
     Route: 058
     Dates: start: 20110315
  2. INSULIN [Concomitant]

REACTIONS (2)
  - DIABETIC KETOACIDOSIS [None]
  - DIABETIC HYPERGLYCAEMIC COMA [None]
